FAERS Safety Report 6037472-5 (Version None)
Quarter: 2009Q1

REPORT INFORMATION
  Report Type: 
  Country: None (occurrence: None)
  Receive Date: 20090114
  Receipt Date: 20090108
  Transmission Date: 20090719
  Serious: Yes (Death)
  Sender: FDA-Public Use
  Company Number: US-ABBOTT-08P-163-0494125-00

PATIENT
  Sex: Male
  Weight: 0.454 kg

DRUGS (1)
  1. KALETRA [Suspect]
     Indication: DRUG EXPOSURE DURING PREGNANCY
     Route: 064

REACTIONS (2)
  - DRUG EXPOSURE DURING PREGNANCY [None]
  - PREMATURE BABY [None]
